FAERS Safety Report 7964307-3 (Version None)
Quarter: 2011Q4

REPORT INFORMATION
  Report Type: 
  Country: None (occurrence: None)
  Receive Date: 20111205
  Receipt Date: 20111117
  Transmission Date: 20120403
  Serious: Yes (Other)
  Sender: FDA-Public Use
  Company Number: 20110820

PATIENT
  Age: 20 Year
  Sex: Male

DRUGS (4)
  1. LIDOCAINE HYDROCHLORIDE [Suspect]
     Indication: INDUCTION OF ANAESTHESIA
     Dosage: 100 MG X 1 PER ONCE
  2. PROPOFOL [Suspect]
     Indication: INDUCTION OF ANAESTHESIA
     Dosage: 250 MG X 1 PER ONCE
  3. OXYMETAZOLINE HCL [Suspect]
     Indication: INDUCTION OF ANAESTHESIA
     Dosage: NASAL
     Route: 045
  4. SUXAMETHONIUM CHLORIDE UNKNOWN [Suspect]
     Indication: INDUCTION OF ANAESTHESIA

REACTIONS (1)
  - ELECTROCARDIOGRAM ST SEGMENT ELEVATION [None]
